FAERS Safety Report 23362515 (Version 1)
Quarter: 2024Q1

REPORT INFORMATION
  Report Type: Spontaneous
  Country: US (occurrence: None)
  Receive Date: 20240103
  Receipt Date: 20240103
  Transmission Date: 20240410
  Serious: No
  Sender: FDA-Public Use
  Company Number: None

PATIENT
  Age: 70 Year
  Sex: Male
  Weight: 101.25 kg

DRUGS (1)
  1. LEQVIO [Suspect]
     Active Substance: INCLISIRAN SODIUM
     Indication: Low density lipoprotein increased
     Dates: start: 20231023

REACTIONS (4)
  - Arthralgia [None]
  - Injection site pain [None]
  - Pruritus [None]
  - Blood bilirubin increased [None]

NARRATIVE: CASE EVENT DATE: 20231123
